FAERS Safety Report 13821188 (Version 2)
Quarter: 2017Q3

REPORT INFORMATION
  Report Type: Spontaneous
  Country: US (occurrence: US)
  Receive Date: 20170801
  Receipt Date: 20170829
  Transmission Date: 20171127
  Serious: Yes (Other)
  Sender: FDA-Public Use
  Company Number: US-SUPERNUS PHARMACEUTICALS, INC.-2017SUP00190

PATIENT
  Age: 70 Year
  Sex: Male
  Weight: 84.81 kg

DRUGS (1)
  1. OXTELLAR XR [Suspect]
     Active Substance: OXCARBAZEPINE
     Indication: TEMPORAL LOBE EPILEPSY
     Dosage: 300 MG, 1X/DAY AT BEDTIME
     Route: 048
     Dates: start: 201405, end: 20170712

REACTIONS (21)
  - Gait disturbance [Unknown]
  - Photopsia [Unknown]
  - Back injury [Not Recovered/Not Resolved]
  - Vision blurred [Unknown]
  - Micturition disorder [Recovered/Resolved]
  - Hypoaesthesia [Unknown]
  - Muscle spasms [Unknown]
  - Cervical radiculopathy [Unknown]
  - Trigger finger [Unknown]
  - Balance disorder [Recovered/Resolved]
  - Carpal tunnel syndrome [Unknown]
  - Burning sensation [Unknown]
  - Neuropathy peripheral [Unknown]
  - Unevaluable event [Unknown]
  - Headache [Unknown]
  - Insomnia [Unknown]
  - Visual impairment [Unknown]
  - Nocturia [Unknown]
  - Migraine with aura [Unknown]
  - Pain in extremity [Unknown]
  - Peripheral swelling [Unknown]

NARRATIVE: CASE EVENT DATE: 2013
